FAERS Safety Report 4775695-3 (Version None)
Quarter: 2005Q3

REPORT INFORMATION
  Report Type: 
  Country: None (occurrence: None)
  Receive Date: 20050920
  Receipt Date: 20050920
  Transmission Date: 20060218
  Serious: Yes (Hospitalization)
  Sender: FDA-Public Use
  Company Number: None

PATIENT
  Age: 52 Year
  Sex: Male
  Weight: 73 kg

DRUGS (15)
  1. THALIDOMIE 100MG CELGENE [Suspect]
     Indication: LUNG NEOPLASM MALIGNANT
     Dosage: 200MG Q HS PO
     Route: 048
     Dates: start: 20041123, end: 20050224
  2. MIRELAX [Concomitant]
  3. COLACE [Concomitant]
  4. SENNA [Concomitant]
  5. PERCOCET [Concomitant]
  6. THALIDOMIDE [Concomitant]
  7. GLUCOPHAGE [Concomitant]
  8. COUMADIN [Concomitant]
  9. COMPAZINE [Concomitant]
  10. GLYBURIDE [Concomitant]
  11. PROVIGIL [Concomitant]
  12. ASPIRIN [Concomitant]
  13. MAGIC MOUTHWASH [Concomitant]
  14. ZOLOFT [Concomitant]
  15. BISACODYL [Concomitant]

REACTIONS (2)
  - CEREBROVASCULAR ACCIDENT [None]
  - PERONEAL NERVE PALSY [None]
